FAERS Safety Report 14577716 (Version 1)
Quarter: 2018Q1

REPORT INFORMATION
  Report Type: Spontaneous
  Country: BR (occurrence: BR)
  Receive Date: 20180227
  Receipt Date: 20180227
  Transmission Date: 20180509
  Serious: Yes (Other)
  Sender: FDA-Public Use
  Company Number: BR-BIOMARINAP-BR-2018-117228

PATIENT
  Sex: Male
  Weight: 73 kg

DRUGS (1)
  1. ALDURAZYME [Suspect]
     Active Substance: LARONIDASE
     Indication: MUCOPOLYSACCHARIDOSIS
     Dosage: UNK, QOW
     Route: 041
     Dates: start: 20090801

REACTIONS (3)
  - Spinal cord compression [Not Recovered/Not Resolved]
  - Unevaluable event [Not Recovered/Not Resolved]
  - Arthropathy [Not Recovered/Not Resolved]
